FAERS Safety Report 4883705-8 (Version None)
Quarter: 2006Q1

REPORT INFORMATION
  Report Type: 
  Country: None (occurrence: None)
  Receive Date: 20060113
  Receipt Date: 20051229
  Transmission Date: 20060701
  Serious: Yes (Hospitalization)
  Sender: FDA-Public Use
  Company Number: US200511001252

PATIENT
  Age: 87 Year
  Sex: Female

DRUGS (7)
  1. FORTEO [Suspect]
     Indication: OSTEOPOROSIS
     Dosage: SEE IMAGE
     Dates: start: 20050901, end: 20051001
  2. FORTEO [Suspect]
     Indication: OSTEOPOROSIS
     Dosage: SEE IMAGE
     Dates: start: 20021001, end: 20051104
  3. FORTEO [Suspect]
     Indication: OSTEOPOROSIS
     Dosage: SEE IMAGE
     Dates: start: 20051115
  4. FORTEO [Concomitant]
  5. VITAMINS-MINERALS THERAPEUTIC (VITAMINS-MINERALS THERAPEUTIC) [Concomitant]
  6. ASA (ASPIRIN (ACETYLSALICYLIC ACID)) TABLET [Concomitant]
  7. CELEBREX [Concomitant]

REACTIONS (6)
  - ANAEMIA [None]
  - ARTHRALGIA [None]
  - BONE PAIN [None]
  - CONDITION AGGRAVATED [None]
  - DIVERTICULITIS INTESTINAL HAEMORRHAGIC [None]
  - MYALGIA [None]
